FAERS Safety Report 15267862 (Version 1)
Quarter: 2018Q3

REPORT INFORMATION
  Report Type: Spontaneous
  Country: US (occurrence: US)
  Receive Date: 20180724
  Receipt Date: 20180724
  Transmission Date: 20181010
  Serious: Yes (Hospitalization)
  Sender: FDA-Public Use
  Company Number: None

PATIENT
  Age: 86 Year
  Sex: Female

DRUGS (24)
  1. ASPIRIN. [Concomitant]
     Active Substance: ASPIRIN
  2. AMLODIPINE [Concomitant]
     Active Substance: AMLODIPINE BESYLATE
  3. CALCIUM D [Concomitant]
     Active Substance: CALCIUM\VITAMIN D
  4. FISH OIL [Concomitant]
     Active Substance: FISH OIL
  5. METOPROLOL. [Concomitant]
     Active Substance: METOPROLOL
  6. NUTROPIN [Suspect]
     Active Substance: SOMATROPIN
     Indication: HYPOPITUITARISM
     Route: 058
     Dates: start: 20130828
  7. BENZONATE [Concomitant]
     Active Substance: BENZONATATE
  8. ONGLYZA [Concomitant]
     Active Substance: SAXAGLIPTIN HYDROCHLORIDE
  9. TRAMADOL. [Concomitant]
     Active Substance: TRAMADOL
  10. WARFARIN [Concomitant]
     Active Substance: WARFARIN
  11. CRESTOR [Concomitant]
     Active Substance: ROSUVASTATIN CALCIUM
  12. VITAMIN C [Concomitant]
     Active Substance: ASCORBIC ACID
  13. METFORMIN [Concomitant]
     Active Substance: METFORMIN HYDROCHLORIDE
  14. TRAMADOL. [Concomitant]
     Active Substance: TRAMADOL
  15. VITAMIN B12 [Concomitant]
     Active Substance: CYANOCOBALAMIN
  16. PREDNISONE. [Concomitant]
     Active Substance: PREDNISONE
  17. GLUCOSAMINE [Concomitant]
     Active Substance: GLUCOSAMINE
  18. LANTUS [Concomitant]
     Active Substance: INSULIN GLARGINE
  19. SILENOR [Concomitant]
     Active Substance: DOXEPIN HYDROCHLORIDE
  20. FERROUS SUL [Concomitant]
  21. FLUTICASONE. [Concomitant]
     Active Substance: FLUTICASONE
  22. FUROSEMIDE. [Concomitant]
     Active Substance: FUROSEMIDE
  23. LEVOTHYROXIN [Concomitant]
     Active Substance: LEVOTHYROXINE
  24. LOSARTAN. [Concomitant]
     Active Substance: LOSARTAN

REACTIONS (1)
  - Pneumonia [None]

NARRATIVE: CASE EVENT DATE: 20180718
